FAERS Safety Report 6432120-4 (Version None)
Quarter: 2009Q4

REPORT INFORMATION
  Report Type: 
  Country: None (occurrence: None)
  Receive Date: 20091109
  Receipt Date: 20091028
  Transmission Date: 20100525
  Serious: Yes (Hospitalization)
  Sender: FDA-Public Use
  Company Number: IT-ELI_LILLY_AND_COMPANY-IT200910003220

PATIENT
  Sex: Male
  Weight: 63 kg

DRUGS (8)
  1. PEMETREXED [Suspect]
     Indication: NON-SMALL CELL LUNG CANCER
     Dosage: 500 MG/M2, ON D1 EVERY 21 DAYS
     Route: 042
     Dates: start: 20091006, end: 20091006
  2. CETUXIMAB [Suspect]
     Indication: NON-SMALL CELL LUNG CANCER
     Dosage: 400 MG/M2, ON D1 CYCLE 1
     Route: 042
     Dates: start: 20091006, end: 20091006
  3. CETUXIMAB [Suspect]
     Dosage: 250 MG/M2, WEEKLY (1/W)
     Route: 042
     Dates: start: 20091013, end: 20091013
  4. CISPLATIN [Suspect]
     Indication: NON-SMALL CELL LUNG CANCER
     Dosage: 75 MG/M2, ON D1 EVERY 21 DAYS
     Route: 042
     Dates: start: 20091006, end: 20091006
  5. FOLIC ACID [Concomitant]
     Indication: PROPHYLAXIS
     Dates: start: 20090929
  6. VIT B12 [Concomitant]
     Indication: PROPHYLAXIS
     Dates: start: 20090929
  7. DEXAMETHASONE [Concomitant]
  8. ANTIHISTAMINES [Concomitant]

REACTIONS (1)
  - MYOCARDIAL ISCHAEMIA [None]
